FAERS Safety Report 9038420 (Version 1)
Quarter: 2013Q1

REPORT INFORMATION
  Report Type: Spontaneous
  Country: PR (occurrence: PR)
  Receive Date: 20130130
  Receipt Date: 20130130
  Transmission Date: 20140127
  Serious: No
  Sender: FDA-Public Use
  Company Number: PR-ABBOTT-12P-131-0928637-00

PATIENT
  Age: 36 Year
  Sex: Female
  Weight: 72.64 kg

DRUGS (9)
  1. HUMIRA 40 MG/0.8 ML PEN [Suspect]
     Indication: RHEUMATOID ARTHRITIS
     Route: 058
     Dates: start: 20120419
  2. SIMVASTATIN [Concomitant]
     Indication: HYPERCHOLESTEROLAEMIA
     Route: 048
     Dates: start: 201203
  3. HORMONE REPLACEMENT [Concomitant]
     Indication: HYSTERECTOMY
     Route: 048
     Dates: start: 201101
  4. BUPROPION [Concomitant]
     Indication: DEPRESSION
     Route: 048
     Dates: start: 201201, end: 20120417
  5. BUPROPION [Concomitant]
     Indication: ANXIETY
  6. VALIUM [Concomitant]
     Indication: DEPRESSION
     Route: 048
     Dates: start: 201201, end: 20120417
  7. VALIUM [Concomitant]
     Indication: ANXIETY
  8. AMITRIPTYLINE [Concomitant]
     Indication: DEPRESSION
     Route: 048
     Dates: start: 201201, end: 20120417
  9. AMITRIPTYLINE [Concomitant]
     Indication: ANXIETY

REACTIONS (7)
  - Somnolence [Unknown]
  - Fatigue [Unknown]
  - Neuropathy peripheral [Unknown]
  - Fibromyalgia [Unknown]
  - Nasopharyngitis [Unknown]
  - Pain [Unknown]
  - Malaise [Unknown]
